FAERS Safety Report 8260363-6 (Version None)
Quarter: 2012Q2

REPORT INFORMATION
  Report Type: 
  Country: None (occurrence: None)
  Receive Date: 20120404
  Receipt Date: 20120331
  Transmission Date: 20120825
  Serious: Yes (Hospitalization, Other)
  Sender: FDA-Public Use
  Company Number: US-ROCHE-696931

PATIENT
  Sex: Female

DRUGS (10)
  1. HERCEPTIN [Suspect]
     Indication: BREAST CANCER METASTATIC
     Dosage: FREQUENCY: OVER 90 MINUTES ON DAY 1.
     Route: 042
  2. LASIX [Concomitant]
     Indication: PRODUCT USED FOR UNKNOWN INDICATION
     Route: 065
  3. LASIX [Concomitant]
     Route: 065
  4. HERCEPTIN [Suspect]
     Dosage: OVER 30 MIN ON DAY 1,8, 15 AND 22
     Route: 042
  5. POTASSIUM CHLORIDE [Concomitant]
     Indication: PRODUCT USED FOR UNKNOWN INDICATION
     Route: 065
  6. CARBOPLATIN [Suspect]
     Indication: BREAST CANCER METASTATIC
     Route: 042
     Dates: start: 20090717, end: 20091225
  7. AVASTIN [Suspect]
     Indication: BREAST CANCER METASTATIC
     Dosage: FREQUENCY: OVER 30 TO 60 MINUTE ON DAY 1.
     Route: 042
     Dates: start: 20090717, end: 20091225
  8. AVASTIN [Suspect]
     Dosage: OVER 30-90 MIN ON DAY 1 AND 15
     Route: 042
     Dates: start: 20100101, end: 20100106
  9. PACLITAXEL [Suspect]
     Indication: BREAST CANCER METASTATIC
     Dosage: OVER 60 MIN ON DAY 1, 8, AND 15
     Route: 042
     Dates: start: 20090717, end: 20091225
  10. HERCEPTIN [Suspect]
     Dosage: OVER 90 MINUTES ON DAY 1.CYCLE 4
     Route: 042

REACTIONS (7)
  - HYPOCALCAEMIA [None]
  - HYPOKALAEMIA [None]
  - BLOOD SODIUM DECREASED [None]
  - MUSCULAR WEAKNESS [None]
  - NAUSEA [None]
  - SKIN INFECTION [None]
  - ABDOMINAL PAIN [None]
